FAERS Safety Report 5062583-0 (Version None)
Quarter: 2006Q3

REPORT INFORMATION
  Report Type: 
  Country: None (occurrence: None)
  Receive Date: 20060721
  Receipt Date: 20060705
  Transmission Date: 20061208
  Serious: Yes (Other)
  Sender: FDA-Public Use
  Company Number: AU200607002497

PATIENT
  Age: 75 Year
  Sex: Male

DRUGS (2)
  1. ALIMTA [Suspect]
     Indication: MESOTHELIOMA
     Dosage: OTHER
  2. CARBOPLATIN [Concomitant]

REACTIONS (3)
  - GANGRENE [None]
  - INFARCTION [None]
  - PERIPHERAL COLDNESS [None]
